FAERS Safety Report 7369565-4 (Version None)
Quarter: 2011Q1

REPORT INFORMATION
  Report Type: 
  Country: None (occurrence: None)
  Receive Date: 20110323
  Receipt Date: 20110303
  Transmission Date: 20110831
  Serious: No
  Sender: FDA-Public Use
  Company Number: US-B.I. PHARMACEUTICALS,INC./RIDGEFIELD-2011-BP-07310BP

PATIENT
  Age: 77 Year
  Sex: Female

DRUGS (5)
  1. LEXAPRO [Concomitant]
  2. DIOVAN [Concomitant]
  3. PRADAXA [Suspect]
     Dosage: 300 MG
     Dates: start: 20110221
  4. LEVOXYL [Concomitant]
  5. CARDIA [Concomitant]

REACTIONS (1)
  - OEDEMA PERIPHERAL [None]
